FAERS Safety Report 8655377 (Version 3)
Quarter: 2012Q4

REPORT INFORMATION
  Report Type: 
  Country: US (occurrence: US)
  Receive Date: 20120709
  Receipt Date: 20120904
  Transmission Date: 20130627
  Serious: Yes (Other)
  Sender: FDA-Public Use
  Company Number: US-PFIZER INC-2012162652

PATIENT
  Age: 46 Year
  Sex: Female
  Weight: 66 kg

DRUGS (5)
  1. LYRICA [Suspect]
     Indication: NECK PAIN
     Dosage: UNK, 1x/day
     Route: 048
     Dates: start: 2012, end: 2012
  2. LYRICA [Suspect]
     Dosage: 75 mg, 2x/day
  3. VENLAFAXINE [Concomitant]
     Indication: DEPRESSION
     Dosage: 150 mg, 2x/day
  4. SIMVASTATIN [Concomitant]
     Indication: BLOOD CHOLESTEROL INCREASED
     Dosage: UNK
  5. TOPAMAX [Concomitant]
     Indication: DEPRESSION
     Dosage: UNK

REACTIONS (3)
  - Fibromyalgia [Unknown]
  - Activities of daily living impaired [Unknown]
  - Fatigue [Unknown]
